FAERS Safety Report 18196811 (Version 1)
Quarter: 2020Q3

REPORT INFORMATION
  Report Type: Spontaneous
  Country: CA (occurrence: CA)
  Receive Date: 20200826
  Receipt Date: 20200826
  Transmission Date: 20201103
  Serious: Yes (Other)
  Sender: FDA-Public Use
  Company Number: CA-009507513-2008CAN012290

PATIENT
  Age: 54 Year
  Sex: Male
  Weight: 65 kg

DRUGS (23)
  1. FUROSEMIDE. [Concomitant]
     Active Substance: FUROSEMIDE
     Dosage: NOT SPECIFIED
     Route: 065
  2. ROSUVASTATIN. [Concomitant]
     Active Substance: ROSUVASTATIN
     Dosage: NOT SPECIFIED
     Route: 065
  3. EZETROL [Concomitant]
     Active Substance: EZETIMIBE
     Dosage: NOT SPECIFIED
     Route: 065
  4. REMERON RD [Concomitant]
     Active Substance: MIRTAZAPINE
     Dosage: NOT SPECIFIED
     Route: 065
  5. ONDANSETRON [Concomitant]
     Active Substance: ONDANSETRON
     Dosage: NOT SPECIFIED
     Route: 065
  6. SENNA [Concomitant]
     Active Substance: SENNA LEAF\SENNOSIDES\SENNOSIDES A AND B
     Dosage: NOT SPECIFIED
     Route: 065
  7. ENOXAPARIN SODIUM. [Concomitant]
     Active Substance: ENOXAPARIN SODIUM
     Dosage: NOT SPECIFIED
     Route: 065
  8. ZOPICLONE [Concomitant]
     Active Substance: ZOPICLONE
     Dosage: NOT SPECIFIED
     Route: 065
  9. MELATONIN [Concomitant]
     Active Substance: MELATONIN
     Dosage: NOT SPECIFIED
     Route: 065
  10. INTEGRILIN [Suspect]
     Active Substance: EPTIFIBATIDE
     Indication: ACUTE MYOCARDIAL INFARCTION
     Dosage: NOT SPECIFIED
     Route: 041
  11. METFORMIN [Concomitant]
     Active Substance: METFORMIN HYDROCHLORIDE
     Dosage: NOT SPECIFIED
     Route: 065
  12. MILRINONE [Concomitant]
     Active Substance: MILRINONE
     Dosage: NOT SPECIFIED
     Route: 065
  13. SPIRONOLACTONE. [Concomitant]
     Active Substance: SPIRONOLACTONE
     Dosage: NOT SPECIFIED
     Route: 065
  14. DIMENHYDRINATE. [Concomitant]
     Active Substance: DIMENHYDRINATE
     Dosage: NOT SPECIFIED
     Route: 065
  15. LACTULOSE. [Concomitant]
     Active Substance: LACTULOSE
     Dosage: NOT SPECIFIED
     Route: 065
  16. PANTOPRAZOLE [Concomitant]
     Active Substance: PANTOPRAZOLE
     Dosage: NOT SPECIFIED
     Route: 065
  17. VANCOMYCIN [Concomitant]
     Active Substance: VANCOMYCIN
     Dosage: NOT SPECIFIED
     Route: 065
  18. MEROPENEM. [Concomitant]
     Active Substance: MEROPENEM
     Dosage: NOT SPECIFIED
     Route: 065
  19. NICOTINE. [Concomitant]
     Active Substance: NICOTINE
     Dosage: NOT SPECIFIED
     Route: 065
  20. ACETAMINOPHEN. [Concomitant]
     Active Substance: ACETAMINOPHEN
     Dosage: NOT SPECIFIED
     Route: 065
  21. ASPIRIN. [Concomitant]
     Active Substance: ASPIRIN
     Dosage: NOT SPECIFIED
     Route: 065
  22. CITALOPRAM [Concomitant]
     Active Substance: CITALOPRAM HYDROBROMIDE
     Dosage: NOT SPECIFIED
     Route: 065
  23. PIPERACILLIN SODIUM (+) TAZOBACTAM [Concomitant]
     Dosage: NOT SPECIFIED
     Route: 065

REACTIONS (4)
  - Cerebrovascular accident [Recovered/Resolved]
  - Thrombocytopenia [Recovered/Resolved]
  - Hemiparesis [Recovered/Resolved]
  - Platelet count decreased [Recovered/Resolved]
